FAERS Safety Report 8389140-2 (Version None)
Quarter: 2012Q2

REPORT INFORMATION
  Report Type: 
  Country: None (occurrence: None)
  Receive Date: 20120528
  Receipt Date: 20120523
  Transmission Date: 20120825
  Serious: Yes (Other)
  Sender: FDA-Public Use
  Company Number: PHHY2012CH044828

PATIENT
  Age: 63 Year
  Sex: Male

DRUGS (2)
  1. VOLTAREN [Suspect]
     Indication: NEURALGIA
     Dosage: 12.5 MG, EVERY HALF TO ONE HOUR
     Route: 048
     Dates: start: 20120201
  2. NEURONTIN [Suspect]
     Indication: NEURALGIA
     Dosage: 300 MG, EVERY HALF TO ONE HOUR
     Route: 048
     Dates: start: 20120201

REACTIONS (3)
  - ASTHENIA [None]
  - SPEECH DISORDER [None]
  - FATIGUE [None]
